FAERS Safety Report 8343362-5 (Version None)
Quarter: 2012Q2

REPORT INFORMATION
  Report Type: 
  Country: None (occurrence: None)
  Receive Date: 20120508
  Receipt Date: 20120426
  Transmission Date: 20120825
  Serious: Yes (Other)
  Sender: FDA-Public Use
  Company Number: CA-JNJFOC-20120306813

PATIENT
  Sex: Male
  Weight: 81.65 kg

DRUGS (3)
  1. REMICADE [Suspect]
     Route: 042
     Dates: start: 20081210
  2. REMICADE [Suspect]
     Route: 042
     Dates: start: 20120308, end: 20120308
  3. REMICADE [Suspect]
     Indication: ANKYLOSING SPONDYLITIS
     Route: 042
     Dates: start: 20120123

REACTIONS (9)
  - FLUSHING [None]
  - URTICARIA [None]
  - DYSPNOEA [None]
  - APHASIA [None]
  - CHEST PAIN [None]
  - HYPOAESTHESIA [None]
  - CHEST DISCOMFORT [None]
  - INFUSION RELATED REACTION [None]
  - ANXIETY [None]
